FAERS Safety Report 13697411 (Version 1)
Quarter: 2017Q2

REPORT INFORMATION
  Report Type: Spontaneous
  Country: US (occurrence: US)
  Receive Date: 20170628
  Receipt Date: 20170628
  Transmission Date: 20170830
  Serious: No
  Sender: FDA-Public Use
  Company Number: None

PATIENT
  Age: 72 Year
  Sex: Female
  Weight: 69.46 kg

DRUGS (37)
  1. LIOTHYRONINE [Suspect]
     Active Substance: LIOTHYRONINE
     Indication: THYROID DISORDER
     Dosage: 7 X
     Route: 048
     Dates: start: 20151220, end: 20160610
  2. VALIUM [Concomitant]
     Active Substance: DIAZEPAM
  3. SYNTHROID [Concomitant]
     Active Substance: LEVOTHYROXINE SODIUM
  4. MC DRODHTIN [Concomitant]
  5. DARASET [Concomitant]
  6. OXYCOXIN [Concomitant]
  7. ALEVE [Concomitant]
     Active Substance: NAPROXEN SODIUM
  8. LISAPRIL [Concomitant]
  9. MORPHINE [Concomitant]
     Active Substance: MORPHINE
  10. LIPITOR [Concomitant]
     Active Substance: ATORVASTATIN CALCIUM
  11. TYNOL 3 [Concomitant]
  12. METFORMIN [Concomitant]
     Active Substance: METFORMIN HYDROCHLORIDE
  13. ESTHER C [Concomitant]
  14. NAPROGEN [Concomitant]
  15. PROBIOTIC [Concomitant]
     Active Substance: PROBIOTICS NOS
  16. FISH OIL [Concomitant]
     Active Substance: FISH OIL
  17. CEPHALEXIN. [Concomitant]
     Active Substance: CEPHALEXIN
  18. TRAMODOL [Concomitant]
     Active Substance: TRAMADOL
  19. DARAVCER [Concomitant]
  20. ASPIRIN. [Concomitant]
     Active Substance: ASPIRIN
  21. Z-PACK [Concomitant]
     Active Substance: AZITHROMYCIN DIHYDRATE
  22. CIPRO [Concomitant]
     Active Substance: CIPROFLOXACIN HYDROCHLORIDE
  23. MINOCYCLINE [Concomitant]
     Active Substance: MINOCYCLINE\MINOCYCLINE HYDROCHLORIDE
  24. PRAVASTATIN. [Concomitant]
     Active Substance: PRAVASTATIN
  25. CLINAYCIN [Concomitant]
  26. ACYLOVIR (ACICLOVIR) [Concomitant]
     Active Substance: ACYCLOVIR
  27. TATCACLINE [Concomitant]
  28. FAMICLORE [Concomitant]
  29. ALOE [Concomitant]
     Active Substance: ALOE
  30. COQ10 [Concomitant]
     Active Substance: UBIDECARENONE
  31. CEFEROMINE [Concomitant]
  32. BACTRIM [Concomitant]
     Active Substance: SULFAMETHOXAZOLE\TRIMETHOPRIM
  33. IMDUR [Concomitant]
     Active Substance: ISOSORBIDE MONONITRATE
  34. VICODIN [Concomitant]
     Active Substance: ACETAMINOPHEN\HYDROCODONE BITARTRATE
  35. ERIYMCIN [Concomitant]
  36. CARDITE [Concomitant]
  37. TYNOIS [Concomitant]

REACTIONS (2)
  - Peripheral swelling [None]
  - Condition aggravated [None]
